FAERS Safety Report 6828632-1 (Version None)
Quarter: 2010Q3

REPORT INFORMATION
  Report Type: 
  Country: None (occurrence: None)
  Receive Date: 20100702
  Receipt Date: 20100618
  Transmission Date: 20110219
  Serious: Yes (Hospitalization)
  Sender: FDA-Public Use
  Company Number: 619169

PATIENT
  Sex: Female

DRUGS (8)
  1. EPINEPHRINE [Suspect]
     Indication: HAEMORRHAGE
     Dates: start: 20100602
  2. EPINEPHRINE [Suspect]
     Indication: LOCAL ANAESTHESIA
     Dates: start: 20100602
  3. EPINEPHRINE [Suspect]
     Indication: HAEMORRHAGE
     Dates: start: 20100602
  4. EPINEPHRINE [Suspect]
     Indication: LOCAL ANAESTHESIA
     Dates: start: 20100602
  5. SODIUM CHLORIDE 0.9% INJECTION, USP (SODIUM CHLORIDE) [Concomitant]
  6. LIDOCAINE HCL [Concomitant]
  7. SODIUM BICARBONATE INJ, USP (SODIUM HYDROGEN CARBONATE) [Concomitant]
  8. (HYPNOTICS AND SEDATIVES) [Concomitant]

REACTIONS (8)
  - BLOOD CALCIUM DECREASED [None]
  - BLOOD MAGNESIUM DECREASED [None]
  - HAEMATOCRIT DECREASED [None]
  - OPERATIVE HAEMORRHAGE [None]
  - PALLOR [None]
  - PRODUCT MEASURED POTENCY ISSUE [None]
  - RHABDOMYOLYSIS [None]
  - TRANSAMINASES INCREASED [None]
